FAERS Safety Report 14586421 (Version 4)
Quarter: 2018Q1

REPORT INFORMATION
  Report Type: Spontaneous
  Country: CN (occurrence: CN)
  Receive Date: 20180301
  Receipt Date: 20180316
  Transmission Date: 20180509
  Serious: Yes (Other)
  Sender: FDA-Public Use
  Company Number: CN-PFIZER INC-2018082791

PATIENT
  Age: 55 Year
  Sex: Male

DRUGS (3)
  1. CLINDAMYCIN PHOSPHATE. [Suspect]
     Active Substance: CLINDAMYCIN PHOSPHATE
     Indication: STAPHYLOCOCCAL INFECTION
     Dosage: 0.6 G, UNK ( IVGTT Q12 HOUR)
     Route: 041
  2. DAPTOMYCIN. [Concomitant]
     Active Substance: DAPTOMYCIN
     Indication: STAPHYLOCOCCAL INFECTION
     Dosage: 0.5 G, 1X/DAY (
     Route: 041
  3. CLINDAMYCIN PHOSPHATE. [Suspect]
     Active Substance: CLINDAMYCIN PHOSPHATE
     Dosage: 0.6 G, 3X/DAY (Q 8 H)

REACTIONS (1)
  - Renal impairment [Recovering/Resolving]
